FAERS Safety Report 24888131 (Version 1)
Quarter: 2025Q1

REPORT INFORMATION
  Report Type: Other
  Country: US (occurrence: US)
  Receive Date: 20250127
  Receipt Date: 20250127
  Transmission Date: 20250408
  Serious: Yes (Hospitalization, Other)
  Sender: OMNIVIUM PHARMACEUTICALS LLC
  Company Number: US-Omnivium Pharmaceuticals LLC-2169853

PATIENT
  Age: 48 Year
  Sex: Male

DRUGS (2)
  1. NUMBRINO [Suspect]
     Active Substance: COCAINE HYDROCHLORIDE
     Indication: Product used for unknown indication
  2. AMPHETAMINE\DEXTROAMPHETAMINE [Concomitant]
     Active Substance: AMPHETAMINE\DEXTROAMPHETAMINE

REACTIONS (2)
  - Chorea [Not Recovered/Not Resolved]
  - Drug abuse [Unknown]
